FAERS Safety Report 26022317 (Version 1)
Quarter: 2025Q4

REPORT INFORMATION
  Report Type: Spontaneous
  Country: US (occurrence: US)
  Receive Date: 20251110
  Receipt Date: 20251110
  Transmission Date: 20260117
  Serious: Yes (Other)
  Sender: AMGEN
  Company Number: US-AMGEN-USASP2025219246

PATIENT

DRUGS (2)
  1. BEVACIZUMAB [Suspect]
     Active Substance: BEVACIZUMAB
     Indication: Craniopharyngioma
     Dosage: 7.5 MILLIGRAM/KILOGRAM, Q3WK
     Route: 065
  2. TOCILIZUMAB [Suspect]
     Active Substance: TOCILIZUMAB
     Indication: Craniopharyngioma
     Route: 065

REACTIONS (7)
  - Cerebral haemorrhage [Unknown]
  - Neutropenia [Unknown]
  - Drug effective for unapproved indication [Unknown]
  - Sinusitis [Unknown]
  - Hypertension [Unknown]
  - Fatigue [Unknown]
  - Off label use [Unknown]
